FAERS Safety Report 19243004 (Version 1)
Quarter: 2021Q2

REPORT INFORMATION
  Report Type: Spontaneous
  Country: BD (occurrence: BD)
  Receive Date: 20210510
  Receipt Date: 20210510
  Transmission Date: 20210717
  Serious: Yes (Hospitalization, Other)
  Sender: FDA-Public Use
  Company Number: BD-SUN PHARMACEUTICAL INDUSTRIES LTD-2021RR-295685

PATIENT
  Age: 26 Year
  Sex: Female
  Weight: 54 kg

DRUGS (20)
  1. CYCLOPHOSPHAMIDE. [Suspect]
     Active Substance: CYCLOPHOSPHAMIDE
     Dosage: UNK, AT 24 WEEKS OF PREGNACY (THIRD CYCLE)
     Route: 065
     Dates: start: 20080527
  2. DOXORUBICIN [Suspect]
     Active Substance: DOXORUBICIN
     Dosage: UNK, AT 21 WEEKS (SECOND CYCLE)
     Route: 065
     Dates: start: 20080502
  3. CYCLOPHOSPHAMIDE. [Suspect]
     Active Substance: CYCLOPHOSPHAMIDE
     Dosage: UNK, AT 28 WEEKS OF PREGNACY (FORTH CYCLE)
     Route: 065
     Dates: start: 20080622
  4. VINCRISTINE [Suspect]
     Active Substance: VINCRISTINE
     Dosage: UNK, AT 28 WEEKS OF PREGNACY (FORTH CYCLE)
     Route: 065
     Dates: start: 20080622
  5. CYCLOPHOSPHAMIDE. [Suspect]
     Active Substance: CYCLOPHOSPHAMIDE
     Dosage: UNK, AT 32 WEEKS OF PREGNACY (FIFTH CYCLE)
     Route: 065
     Dates: start: 20080826
  6. PREDNISOLONE. [Suspect]
     Active Substance: PREDNISOLONE
     Dosage: UNK, AT 32 WEEKS OF PREGNACY (FIFTH CYCLE)
     Route: 065
     Dates: start: 20080826
  7. DOXORUBICIN [Suspect]
     Active Substance: DOXORUBICIN
     Indication: NON-HODGKIN^S LYMPHOMA STAGE IV
     Dosage: 70 MILLIGRAM, UNK (FIRST CYCLE)
     Route: 065
  8. VINCRISTINE [Suspect]
     Active Substance: VINCRISTINE
     Dosage: UNK, AT 24 WEEKS OF PREGNACY (THIRD CYCLE)
     Route: 065
     Dates: start: 20080527
  9. PREDNISOLONE. [Suspect]
     Active Substance: PREDNISOLONE
     Indication: NON-HODGKIN^S LYMPHOMA STAGE IV
     Dosage: 80 MILLIGRAM, UNK (FIRST CYCLE)
     Route: 065
  10. PREDNISOLONE. [Suspect]
     Active Substance: PREDNISOLONE
     Dosage: UNK, AT 21 WEEKS (SECOND CYCLE)
     Route: 065
     Dates: start: 20080502
  11. PREDNISOLONE. [Suspect]
     Active Substance: PREDNISOLONE
     Dosage: UNK, AT 28 WEEKS OF PREGNACY (FORTH CYCLE)
     Route: 065
     Dates: start: 20080622
  12. DOXORUBICIN [Suspect]
     Active Substance: DOXORUBICIN
     Dosage: UNK, AT 24 WEEKS OF PREGNACY (THIRD CYCLE)
     Route: 065
     Dates: start: 20080527
  13. DOXORUBICIN [Suspect]
     Active Substance: DOXORUBICIN
     Dosage: UNK, AT 28 WEEKS OF PREGNACY (FORTH CYCLE)
     Route: 065
     Dates: start: 20080622
  14. DOXORUBICIN [Suspect]
     Active Substance: DOXORUBICIN
     Dosage: UNK, AT 32 WEEKS OF PREGNACY (FIFTH CYCLE)
     Route: 065
     Dates: start: 20080826
  15. VINCRISTINE [Suspect]
     Active Substance: VINCRISTINE
     Indication: NON-HODGKIN^S LYMPHOMA STAGE IV
     Dosage: 1.6 MILLIGRAM, UNK (FIRST CYCLE)
     Route: 065
  16. VINCRISTINE [Suspect]
     Active Substance: VINCRISTINE
     Dosage: UNK, AT 32 WEEKS OF PREGNACY (FIFTH CYCLE)
     Route: 065
     Dates: start: 20080826
  17. VINCRISTINE [Suspect]
     Active Substance: VINCRISTINE
     Dosage: UNK, AT 21 WEEKS (SECOND CYCLE)
     Route: 065
     Dates: start: 20080502
  18. PREDNISOLONE. [Suspect]
     Active Substance: PREDNISOLONE
     Dosage: UNK, AT 24 WEEKS OF PREGNACY (THIRD CYCLE)
     Route: 065
     Dates: start: 20080527
  19. CYCLOPHOSPHAMIDE. [Suspect]
     Active Substance: CYCLOPHOSPHAMIDE
     Indication: NON-HODGKIN^S LYMPHOMA STAGE IV
     Dosage: 800 MILLIGRAM, UNK (FIRST CYCLE)
     Route: 065
  20. CYCLOPHOSPHAMIDE. [Suspect]
     Active Substance: CYCLOPHOSPHAMIDE
     Dosage: UNK, AT 21 WEEKS (SECOND CYCLE)
     Route: 065
     Dates: start: 20080502

REACTIONS (4)
  - Pleural effusion [Unknown]
  - Condition aggravated [Recovered/Resolved]
  - Exposure during pregnancy [Unknown]
  - Caesarean section [Unknown]
